FAERS Safety Report 8615417-9 (Version None)
Quarter: 2012Q3

REPORT INFORMATION
  Report Type: 
  Country: None (occurrence: None)
  Receive Date: 20120823
  Receipt Date: 20120816
  Transmission Date: 20120928
  Serious: Yes (Hospitalization)
  Sender: FDA-Public Use
  Company Number: JP-ABBOTT-09P-087-0603820-00

PATIENT
  Sex: Male

DRUGS (13)
  1. ADALIMUMAB [Suspect]
     Indication: RHEUMATOID ARTHRITIS
     Route: 058
     Dates: start: 20090630, end: 20091006
  2. FAMOTIDINE [Concomitant]
     Indication: GASTRITIS PROPHYLAXIS
     Dates: end: 20091006
  3. FOLIC ACID [Concomitant]
     Indication: ADVERSE REACTION
  4. PREDNISOLONE [Concomitant]
     Dates: start: 20091030
  5. SULFASALAZINE [Concomitant]
     Indication: RHEUMATOID ARTHRITIS
     Dates: start: 20060101, end: 20090810
  6. ISONIAZID [Concomitant]
     Indication: ANTIBIOTIC PROPHYLAXIS
     Dates: start: 20090630, end: 20091006
  7. PYRIDOXAL PHOSPHATE HYDRATE [Concomitant]
     Indication: ADVERSE REACTION
  8. FOLIC ACID [Concomitant]
     Indication: PROPHYLAXIS
     Dates: end: 20091006
  9. CHINESE MEDICINE [Concomitant]
     Indication: RHEUMATOID ARTHRITIS
     Dates: end: 20091006
  10. METHOTREXATE [Concomitant]
     Indication: RHEUMATOID ARTHRITIS
     Dates: start: 20060101, end: 20091006
  11. PYRIDOXAL PHOSPHATE HYDRATE [Concomitant]
     Indication: PROPHYLAXIS
     Dates: start: 20090630, end: 20091006
  12. ETODOLAC [Concomitant]
     Indication: RHEUMATOID ARTHRITIS
     Dates: end: 20091006
  13. PREDNISOLONE [Concomitant]
     Indication: RHEUMATOID ARTHRITIS
     Route: 048
     Dates: start: 20060101, end: 20091006

REACTIONS (4)
  - INTERSTITIAL LUNG DISEASE [None]
  - RASH [None]
  - ARTHRALGIA [None]
  - PNEUMONIA [None]
